FAERS Safety Report 4306604-9 (Version None)
Quarter: 2004Q1

REPORT INFORMATION
  Report Type: 
  Country: None (occurrence: None)
  Receive Date: 20040225
  Receipt Date: 20031007
  Transmission Date: 20041129
  Serious: No
  Sender: FDA-Public Use
  Company Number: US-BRISTOL-MYERS SQUIBB COMPANY-12412649

PATIENT
  Sex: Female

DRUGS (2)
  1. EXCEDRIN TABS [Suspect]
     Indication: HEADACHE
     Route: 048
  2. ACETYLSALICYLIC ACID [Suspect]
     Dosage: TAKEN THE DAY AFTER THE EXCEDRIN WAS TAKEN

REACTIONS (1)
  - ABDOMINAL PAIN UPPER [None]
